FAERS Safety Report 6833650-3 (Version None)
Quarter: 2010Q3

REPORT INFORMATION
  Report Type: 
  Country: None (occurrence: None)
  Receive Date: 20100712
  Receipt Date: 20070329
  Transmission Date: 20110219
  Serious: No
  Sender: FDA-Public Use
  Company Number: US-PFIZER INC-2007027012

PATIENT
  Sex: Male
  Weight: 90.72 kg

DRUGS (6)
  1. CHANTIX [Suspect]
     Indication: SMOKING CESSATION THERAPY
     Dates: start: 20070201, end: 20070301
  2. SEROQUEL [Concomitant]
     Indication: BIPOLAR II DISORDER
  3. TOFRANIL [Concomitant]
     Indication: BIPOLAR II DISORDER
  4. KLONOPIN [Concomitant]
     Indication: ANXIETY
  5. BENICAR [Concomitant]
     Indication: HYPERTENSION
  6. ACIPHEX [Concomitant]
     Indication: GASTROOESOPHAGEAL REFLUX DISEASE

REACTIONS (7)
  - AGITATION [None]
  - ANGER [None]
  - DEPRESSION [None]
  - DRUG DOSE OMISSION [None]
  - HYPERSOMNIA [None]
  - IRRITABILITY [None]
  - STRESS [None]
